FAERS Safety Report 6526869-2 (Version None)
Quarter: 2009Q4

REPORT INFORMATION
  Report Type: 
  Country: None (occurrence: None)
  Receive Date: 20091230
  Receipt Date: 20091216
  Transmission Date: 20100525
  Serious: Yes (Death, Other)
  Sender: FDA-Public Use
  Company Number: 2009-03401

PATIENT
  Age: 78 Year
  Sex: Female
  Weight: 43 kg

DRUGS (12)
  1. VELCADE [Suspect]
     Indication: MULTIPLE MYELOMA
     Dosage: 1.7 MG, INTRAVENOUS
     Route: 042
     Dates: start: 20070907, end: 20070914
  2. DEXAMETHASONE TAB [Suspect]
     Indication: MULTIPLE MYELOMA
     Dosage: 20 MG, INTRAVENOUS
     Route: 042
     Dates: start: 20070907, end: 20070914
  3. MORPHINE [Concomitant]
     Indication: PAIN
  4. MAXIPIME [Concomitant]
  5. MYCOSYST (FLUCONAZOLE) [Concomitant]
  6. BACTRIM [Concomitant]
  7. FAMOTIDINE [Concomitant]
  8. MAGNESIUM OXIDE (MAGNESIUM OXIDE) [Concomitant]
  9. ACYCLOVIR [Concomitant]
  10. RED BLOOD CELLS [Concomitant]
  11. PLATELETS [Concomitant]
  12. ZOMETA [Concomitant]

REACTIONS (9)
  - DELIRIUM [None]
  - DISORIENTATION [None]
  - DISSEMINATED INTRAVASCULAR COAGULATION [None]
  - HYPERGAMMAGLOBULINAEMIA [None]
  - HYPERVISCOSITY SYNDROME [None]
  - MALIGNANT NEOPLASM PROGRESSION [None]
  - MULTIPLE MYELOMA [None]
  - PYREXIA [None]
  - TUMOUR LYSIS SYNDROME [None]
